FAERS Safety Report 16978263 (Version 1)
Quarter: 2019Q4

REPORT INFORMATION
  Report Type: Spontaneous
  Country: US (occurrence: US)
  Receive Date: 20191031
  Receipt Date: 20191031
  Transmission Date: 20200122
  Serious: Yes (Other)
  Sender: FDA-Public Use
  Company Number: US-ZYDUS-042671

PATIENT
  Age: 24 Year
  Sex: Female

DRUGS (4)
  1. AMIKACIN. [Suspect]
     Active Substance: AMIKACIN
     Indication: POSTOPERATIVE WOUND INFECTION
     Dosage: INHALATION
  2. AZITHROMYCIN ANHYDROUS. [Suspect]
     Active Substance: AZITHROMYCIN ANHYDROUS
     Indication: POSTOPERATIVE WOUND INFECTION
  3. CLOFAZIMINE [Suspect]
     Active Substance: CLOFAZIMINE
     Indication: POSTOPERATIVE WOUND INFECTION
  4. TIGECYCLINE. [Suspect]
     Active Substance: TIGECYCLINE
     Indication: POSTOPERATIVE WOUND INFECTION

REACTIONS (2)
  - Gastrointestinal toxicity [Unknown]
  - Neurotoxicity [Unknown]
